FAERS Safety Report 9257688 (Version 1)
Quarter: 2013Q2

REPORT INFORMATION
  Report Type: Spontaneous
  Country: IT (occurrence: IT)
  Receive Date: 20130426
  Receipt Date: 20130426
  Transmission Date: 20140414
  Serious: Yes (Other)
  Sender: FDA-Public Use
  Company Number: IT-ELI_LILLY_AND_COMPANY-IT201304006245

PATIENT
  Age: 75 Year
  Sex: Male

DRUGS (7)
  1. EFIENT [Suspect]
     Indication: PERCUTANEOUS CORONARY INTERVENTION
     Dosage: 10 MG, UNK
     Route: 048
     Dates: end: 20130420
  2. ASPIRINA [Concomitant]
     Dosage: 100 MG, UNK
     Dates: end: 20130420
  3. BISOPROLOL [Concomitant]
     Dosage: 2.5 MG, UNK
  4. AMIODARONE [Concomitant]
     Dosage: 200 MG, UNK
  5. RAMIPRIL [Concomitant]
     Dosage: 2.5 MG, UNK
  6. FUROSEMIDE [Concomitant]
     Dosage: 10 MG, UNK
  7. ATORVASTATIN [Concomitant]
     Dosage: 80 MG, UNK

REACTIONS (2)
  - Purpura [Recovering/Resolving]
  - Platelet count decreased [Recovering/Resolving]
